FAERS Safety Report 5317167-3 (Version None)
Quarter: 2007Q2

REPORT INFORMATION
  Report Type: 
  Country: None (occurrence: None)
  Receive Date: 20070504
  Receipt Date: 20070424
  Transmission Date: 20071010
  Serious: Yes (Other)
  Sender: FDA-Public Use
  Company Number: BE-PFIZER INC-2007010796

PATIENT
  Sex: Female
  Weight: 81 kg

DRUGS (11)
  1. CHAMPIX [Suspect]
     Indication: SMOKING CESSATION THERAPY
     Route: 048
  2. QUETIAPINE FUMARATE [Concomitant]
     Route: 048
  3. REQUIP [Concomitant]
     Route: 048
  4. INDERAL [Concomitant]
     Route: 048
  5. ORGAMETRIL [Concomitant]
     Route: 048
  6. RIVOTRIL [Concomitant]
     Route: 048
  7. DOMPERIDONE [Concomitant]
     Route: 048
  8. SPASMOMEN [Concomitant]
     Route: 048
  9. OMEPRAZOLE [Concomitant]
     Route: 048
  10. PROLOPA [Concomitant]
     Route: 048
  11. DUPHALAC [Concomitant]
     Route: 048

REACTIONS (6)
  - ABDOMINAL PAIN UPPER [None]
  - CONSTIPATION [None]
  - DIARRHOEA [None]
  - GASTROINTESTINAL PAIN [None]
  - NAUSEA [None]
  - POLYP [None]
